FAERS Safety Report 12957070 (Version 1)
Quarter: 2016Q4

REPORT INFORMATION
  Report Type: Report from Study
  Country: None (occurrence: GB)
  Receive Date: 20161118
  Receipt Date: 20161118
  Transmission Date: 20170207
  Serious: Yes (Other)
  Sender: FDA-Public Use
  Company Number: GB-ABBVIE-16K-167-1735846-00

PATIENT
  Age: 72 Year
  Sex: Female
  Weight: 60 kg

DRUGS (1)
  1. HUMIRA [Suspect]
     Active Substance: ADALIMUMAB
     Indication: RHEUMATOID ARTHRITIS
     Route: 058
     Dates: start: 20070903, end: 20141215

REACTIONS (6)
  - Diverticulitis [Recovered/Resolved]
  - Gastrointestinal infection [Recovered/Resolved]
  - Large intestinal stenosis [Recovered/Resolved]
  - Incision site abscess [Recovered/Resolved]
  - Wound [Unknown]
  - Intestinal ulcer [Unknown]

NARRATIVE: CASE EVENT DATE: 20150209
